FAERS Safety Report 9377167 (Version 1)
Quarter: 2013Q3

REPORT INFORMATION
  Report Type: Spontaneous
  Country: US (occurrence: US)
  Receive Date: 20130701
  Receipt Date: 20130701
  Transmission Date: 20140515
  Serious: Yes (Hospitalization)
  Sender: FDA-Public Use
  Company Number: US-BAYER-2013-079798

PATIENT
  Age: 28 Year
  Sex: Female

DRUGS (2)
  1. YAZ [Suspect]
  2. MOTRIN [Concomitant]
     Dosage: UNK
     Route: 048
     Dates: start: 20080813

REACTIONS (1)
  - Pulmonary embolism [None]
